FAERS Safety Report 20034644 (Version 2)
Quarter: 2021Q4

REPORT INFORMATION
  Report Type: Spontaneous
  Country: PT (occurrence: PT)
  Receive Date: 20211104
  Receipt Date: 20211111
  Transmission Date: 20220303
  Serious: Yes (Hospitalization)
  Sender: FDA-Public Use
  Company Number: PT-BoehringerIngelheim-2021-BI-135369

PATIENT
  Age: 58 Year
  Sex: Female

DRUGS (4)
  1. SPIRIVA RESPIMAT [Suspect]
     Active Substance: TIOTROPIUM BROMIDE
     Indication: Respiratory disorder
     Dosage: 2 INHALATIONS/3 TIMES A DAY (MORNING, AFTERNOON, NIGHT)
     Route: 055
     Dates: end: 2021
  2. SPIRIVA RESPIMAT [Suspect]
     Active Substance: TIOTROPIUM BROMIDE
     Dosage: 1 INHALATION/TWICE A DAY (MORNING AND NIGHT)
     Route: 055
     Dates: start: 2021, end: 2021
  3. SPIRIVA RESPIMAT [Suspect]
     Active Substance: TIOTROPIUM BROMIDE
     Dosage: 2 INHALATIONS IN THE MORNING + 2 INHALATIONS AT NIGHT
     Route: 055
     Dates: start: 2021
  4. SYMBICORT [Concomitant]
     Active Substance: BUDESONIDE\FORMOTEROL FUMARATE DIHYDRATE
     Indication: Respiratory disorder
     Dosage: 1 INHALATION/TWICE A DAY (MORNING AND NIGHT)
     Route: 055

REACTIONS (7)
  - Dyspnoea [Recovered/Resolved]
  - Dysphonia [Unknown]
  - Off label use [Unknown]
  - Inappropriate schedule of product administration [Unknown]
  - Cough [Unknown]
  - Intentional product misuse [Unknown]
  - Wrong technique in product usage process [Unknown]

NARRATIVE: CASE EVENT DATE: 20210101
